FAERS Safety Report 9117229 (Version 1)
Quarter: 2013Q1

REPORT INFORMATION
  Report Type: Report from Study
  Country: US (occurrence: US)
  Receive Date: 20130208
  Receipt Date: 20130208
  Transmission Date: 20140127
  Serious: No
  Sender: FDA-Public Use
  Company Number: US-VERTEX PHARMACEUTICALS INC.-2013-001746

PATIENT
  Age: 49 Year
  Sex: Male
  Weight: 79 kg

DRUGS (9)
  1. VX-950 (TELAPREVIR) [Suspect]
     Indication: HEPATITIS C
     Dosage: 750 MG, TID
     Route: 048
  2. PEGASYS [Suspect]
     Indication: HEPATITIS C
  3. RIBAVIRIN [Suspect]
     Indication: HEPATITIS C
  4. TRAZODONE [Concomitant]
     Dosage: 50 MG, UNK
  5. CITALOPRAM [Concomitant]
     Dosage: 10 MG, UNK
  6. ONDANSETRON [Concomitant]
     Dosage: 8 MG, UNK
  7. ADVAIR DISKU [Concomitant]
     Dosage: 500/50
  8. COMBIVENT [Concomitant]
  9. ASPIRIN [Concomitant]
     Dosage: 81 MG, UNK

REACTIONS (5)
  - Weight decreased [Unknown]
  - Insomnia [Unknown]
  - Fatigue [Unknown]
  - Nausea [Unknown]
  - Vomiting [Unknown]
